FAERS Safety Report 6604907-6 (Version None)
Quarter: 2010Q1

REPORT INFORMATION
  Report Type: 
  Country: None (occurrence: None)
  Receive Date: 20100226
  Receipt Date: 20100218
  Transmission Date: 20100710
  Serious: Yes (Disabling)
  Sender: FDA-Public Use
  Company Number: B0636023A

PATIENT
  Sex: Female
  Weight: 49 kg

DRUGS (3)
  1. VENTILAN [Suspect]
     Dosage: 4MG PER DAY
     Route: 048
     Dates: start: 20100127, end: 20100128
  2. EUTIROX [Concomitant]
     Dates: start: 20100110
  3. AERIUS [Concomitant]
     Dates: start: 20100126

REACTIONS (4)
  - COUGH [None]
  - DYSKINESIA [None]
  - PALPITATIONS [None]
  - TREMOR [None]
